FAERS Safety Report 10098223 (Version 2)
Quarter: 2014Q2

REPORT INFORMATION
  Report Type: Spontaneous
  Country: US (occurrence: US)
  Receive Date: 20140423
  Receipt Date: 20140423
  Transmission Date: 20141212
  Serious: Yes (Other)
  Sender: FDA-Public Use
  Company Number: US-BRISTOL-MYERS SQUIBB COMPANY-20221388

PATIENT
  Age: 66 Year
  Sex: Female

DRUGS (15)
  1. YERVOY [Suspect]
     Indication: MALIGNANT MELANOMA
     Dosage: 1 DF = 5 MG/ML.?3MG/KG:4 TIMES. B.NO.:921301 EXP:MAR2015
     Route: 042
     Dates: start: 20131106, end: 20131127
  2. GABAPENTIN [Suspect]
  3. DIPHENHYDRAMINE HCL [Concomitant]
     Route: 042
     Dates: start: 20131106
  4. FAMOTIDINE [Concomitant]
     Route: 042
     Dates: start: 20131106
  5. HEPARIN SODIUM [Concomitant]
     Dates: start: 20131106
  6. SODIUM CHLORIDE [Concomitant]
     Route: 042
     Dates: start: 20131106
  7. AMINO ACIDS [Concomitant]
     Dosage: CAPS
     Route: 048
  8. CLONAZEPAM [Concomitant]
     Route: 048
  9. FORTEO [Concomitant]
     Indication: RHEUMATOID ARTHRITIS
     Route: 058
  10. HYDROXYZINE [Concomitant]
     Dosage: TAB
     Route: 048
  11. METHADONE HCL [Concomitant]
     Indication: PAIN
     Route: 048
  12. POTASSIUM CHLORIDE [Concomitant]
     Route: 048
  13. VITAMIN C [Concomitant]
     Route: 048
  14. ZOLPIDEM TARTRATE [Concomitant]
     Dosage: AT NIGHT
     Route: 048
  15. VITAMIN D [Concomitant]
     Dosage: 1DF=50,000 UNITS CAPS
     Route: 048
     Dates: end: 20140226

REACTIONS (1)
  - Hepatitis [Recovering/Resolving]
